FAERS Safety Report 11963303 (Version 1)
Quarter: 2016Q1

REPORT INFORMATION
  Report Type: Spontaneous
  Country: US (occurrence: None)
  Receive Date: 20160122
  Receipt Date: 20160122
  Transmission Date: 20160526
  Serious: Yes (Death)
  Sender: FDA-Public Use
  Company Number: None

PATIENT
  Age: 18 Year
  Sex: Male
  Weight: 48.08 kg

DRUGS (3)
  1. RISPERDONE [Concomitant]
     Active Substance: RISPERIDONE
  2. FLUOXETINE 20MG SANDOZ [Suspect]
     Active Substance: FLUOXETINE HYDROCHLORIDE
     Indication: ABNORMAL BEHAVIOUR
     Dosage: 4 PILLS
     Route: 048
     Dates: start: 20120901, end: 20140619
  3. TOPAMAX [Concomitant]
     Active Substance: TOPIRAMATE

REACTIONS (2)
  - Toxicity to various agents [None]
  - Metabolic disorder [None]

NARRATIVE: CASE EVENT DATE: 20140619
